FAERS Safety Report 17243936 (Version 1)
Quarter: 2020Q1

REPORT INFORMATION
  Report Type: Spontaneous
  Country: FR (occurrence: FR)
  Receive Date: 20200107
  Receipt Date: 20200107
  Transmission Date: 20200409
  Serious: Yes (Hospitalization)
  Sender: FDA-Public Use
  Company Number: FR-MYLANLABS-2020M1001425

PATIENT
  Age: 29 Year
  Sex: Male
  Weight: 70 kg

DRUGS (7)
  1. METHOTREXATE MYLAN [Suspect]
     Active Substance: METHOTREXATE SODIUM
     Indication: BURKITT^S LYMPHOMA
     Dosage: 5600 MILLIGRAM, QD
     Route: 042
     Dates: start: 20180904, end: 20180904
  2. HYDROCORTISONE ACETATE. [Suspect]
     Active Substance: HYDROCORTISONE ACETATE
     Indication: BURKITT^S LYMPHOMA
     Dosage: 40 MILLIGRAM, QD
     Route: 024
     Dates: start: 20180905, end: 20180909
  3. DOXORUBICINE ACCORD [Suspect]
     Active Substance: DOXORUBICIN
     Indication: BURKITT^S LYMPHOMA
     Dosage: 115 MILLIGRAM, QD
     Route: 042
     Dates: start: 20180905, end: 20180905
  4. CYTARABINE. [Suspect]
     Active Substance: CYTARABINE
     Indication: BURKITT^S LYMPHOMA
     Dosage: 80 MILLIGRAM, QD
     Route: 024
     Dates: start: 20180905, end: 20180909
  5. VINCRISTINE HOSPIRA [Suspect]
     Active Substance: VINCRISTINE
     Indication: BURKITT^S LYMPHOMA
     Dosage: 2 MILLIGRAM, QD
     Route: 042
     Dates: start: 20180904, end: 20180904
  6. MABTHERA [Suspect]
     Active Substance: RITUXIMAB
     Indication: BURKITT^S LYMPHOMA
     Dosage: 1420 MILLIGRAM, CYCLE
     Route: 042
     Dates: start: 20180903, end: 20180909
  7. METHOTREXATE BIODIM [Suspect]
     Active Substance: METHOTREXATE
     Indication: BURKITT^S LYMPHOMA
     Dosage: 30 MILLIGRAM, QD
     Route: 024
     Dates: start: 20180905, end: 20180909

REACTIONS (2)
  - Mucosal inflammation [Recovered/Resolved]
  - Febrile bone marrow aplasia [Recovered/Resolved]

NARRATIVE: CASE EVENT DATE: 20180913
